FAERS Safety Report 16827275 (Version 1)
Quarter: 2019Q3

REPORT INFORMATION
  Report Type: Spontaneous
  Country: JP (occurrence: JP)
  Receive Date: 20190919
  Receipt Date: 20190919
  Transmission Date: 20191005
  Serious: Yes (Hospitalization, Other)
  Sender: FDA-Public Use
  Company Number: JP-GLAXOSMITHKLINE-JP2019JPN166405

PATIENT
  Sex: Male

DRUGS (1)
  1. BENLYSTA [Suspect]
     Active Substance: BELIMUMAB
     Indication: SYSTEMIC LUPUS ERYTHEMATOSUS
     Dosage: 200 MG, WE
     Route: 058
     Dates: start: 201804, end: 201908

REACTIONS (3)
  - Ascites [Recovering/Resolving]
  - Systemic lupus erythematosus [Recovering/Resolving]
  - Lupus enteritis [Recovering/Resolving]

NARRATIVE: CASE EVENT DATE: 201908
